FAERS Safety Report 24443799 (Version 2)
Quarter: 2024Q4

REPORT INFORMATION
  Report Type: Report from Study
  Country: CA (occurrence: CA)
  Receive Date: 20241016
  Receipt Date: 20241017
  Transmission Date: 20250115
  Serious: No
  Sender: ROCHE
  Company Number: CA-ROCHE-2190671

PATIENT
  Age: 29 Year
  Sex: Female
  Weight: 74.8 kg

DRUGS (11)
  1. RITUXAN [Suspect]
     Active Substance: RITUXIMAB
     Indication: Juvenile idiopathic arthritis
     Dosage: FREQUENCY TEXT:DAY 1, 15
     Route: 042
     Dates: start: 20111228, end: 20191104
  2. RITUXAN [Suspect]
     Active Substance: RITUXIMAB
     Dosage: DAY 1, 15
     Route: 042
     Dates: start: 20220506, end: 20220520
  3. ACTEMRA [Suspect]
     Active Substance: TOCILIZUMAB
     Indication: Rheumatoid arthritis
     Route: 042
     Dates: start: 20220927
  4. DIPHENHYDRAMINE HYDROCHLORIDE [Concomitant]
     Active Substance: DIPHENHYDRAMINE HYDROCHLORIDE
     Indication: Premedication
     Route: 048
     Dates: start: 20111228
  5. ACETAMINOPHEN [Concomitant]
     Active Substance: ACETAMINOPHEN
     Indication: Premedication
     Route: 048
     Dates: start: 20111228
  6. METHYLPREDNISOLONE [Concomitant]
     Active Substance: METHYLPREDNISOLONE
     Indication: Premedication
     Route: 042
     Dates: start: 20111228
  7. ADVIL [Concomitant]
     Active Substance: IBUPROFEN
  8. ARAVA [Concomitant]
     Active Substance: LEFLUNOMIDE
     Dates: start: 201307
  9. CIMZIA [Concomitant]
     Active Substance: CERTOLIZUMAB PEGOL
     Indication: Rheumatoid arthritis
  10. PRED FORTE [Concomitant]
     Active Substance: PREDNISOLONE ACETATE
  11. PREDNISONE [Concomitant]
     Active Substance: PREDNISONE

REACTIONS (4)
  - Joint stiffness [Not Recovered/Not Resolved]
  - Arthralgia [Not Recovered/Not Resolved]
  - Rheumatoid arthritis [Not Recovered/Not Resolved]
  - Joint swelling [Unknown]

NARRATIVE: CASE EVENT DATE: 20180913
